FAERS Safety Report 5328160-9 (Version None)
Quarter: 2007Q2

REPORT INFORMATION
  Report Type: 
  Country: None (occurrence: None)
  Receive Date: 20070514
  Receipt Date: 20070509
  Transmission Date: 20071010
  Serious: Yes (Hospitalization)
  Sender: FDA-Public Use
  Company Number: 2007SP008941

PATIENT

DRUGS (1)
  1. DESLORATADINE [Suspect]

REACTIONS (2)
  - HALLUCINATION, AUDITORY [None]
  - PSYCHOTIC DISORDER [None]
